FAERS Safety Report 4343991-X (Version None)
Quarter: 2004Q2

REPORT INFORMATION
  Report Type: 
  Country: None (occurrence: None)
  Receive Date: 20040419
  Receipt Date: 20040405
  Transmission Date: 20050107
  Serious: Yes (Other)
  Sender: FDA-Public Use
  Company Number: GBWYE693207APR04

PATIENT
  Age: 42 Year
  Sex: Male

DRUGS (1)
  1. EFFEXOR [Suspect]
     Indication: DEPRESSION
     Dosage: 75 MG,
     Route: 048
     Dates: start: 20031124, end: 20040213

REACTIONS (2)
  - HYPERTENSION [None]
  - MUSCLE TIGHTNESS [None]
